FAERS Safety Report 17098717 (Version 1)
Quarter: 2019Q4

REPORT INFORMATION
  Report Type: Spontaneous
  Country: US (occurrence: US)
  Receive Date: 20191202
  Receipt Date: 20191202
  Transmission Date: 20200122
  Serious: No
  Sender: FDA-Public Use
  Company Number: US-ELI_LILLY_AND_COMPANY-US201911001568

PATIENT
  Age: 25 Year
  Sex: Male

DRUGS (3)
  1. EMGALITY [Suspect]
     Active Substance: GALCANEZUMAB-GNLM
     Indication: CLUSTER HEADACHE
     Dosage: 2 DOSAGE FORM, MONTHLY (1/M)
     Route: 065
     Dates: start: 201908
  2. EMGALITY [Suspect]
     Active Substance: GALCANEZUMAB-GNLM
     Dosage: 2 DOSAGE FORM, MONTHLY (1/M)
     Route: 065
  3. PROPANOLOL [PROPRANOLOL] [Concomitant]
     Active Substance: PROPRANOLOL HYDROCHLORIDE
     Indication: HEADACHE
     Dosage: UNK UNK, UNKNOWN
     Route: 065

REACTIONS (2)
  - Wrong dose [Unknown]
  - Drug ineffective [Unknown]
